FAERS Safety Report 23586946 (Version 1)
Quarter: 2024Q1

REPORT INFORMATION
  Report Type: Spontaneous
  Country: US (occurrence: None)
  Receive Date: 20240301
  Receipt Date: 20240301
  Transmission Date: 20240410
  Serious: Yes (Hospitalization)
  Sender: FDA-Public Use
  Company Number: None

PATIENT
  Sex: Female

DRUGS (9)
  1. COSENTYX [Suspect]
     Active Substance: SECUKINUMAB
     Indication: Psoriatic arthropathy
     Dosage: FREQ: INJECT 2 SYRINGES UNDER THE SKIN (SUBCUTANEOUS INJECTION) EVERY FOUR WEEKS
     Route: 058
     Dates: start: 20210827
  2. ASPIRIN CHEW [Concomitant]
  3. BYSTOLIC [Concomitant]
  4. CELECOXIB [Concomitant]
     Active Substance: CELECOXIB
  5. COSENTYX [Concomitant]
     Active Substance: SECUKINUMAB
  6. CYCLOBENZAPRINE [Concomitant]
     Active Substance: CYCLOBENZAPRINE
  7. GABAPENTIN [Concomitant]
  8. HYDROCHLOROT [Concomitant]
  9. MELOXICAM [Concomitant]

REACTIONS (1)
  - Hospitalisation [None]
